FAERS Safety Report 18527051 (Version 6)
Quarter: 2021Q4

REPORT INFORMATION
  Report Type: Other
  Country: AT (occurrence: AT)
  Receive Date: 20201120
  Receipt Date: 20211221
  Transmission Date: 20220303
  Serious: Yes (Hospitalization, Other)
  Sender: FDA-Public Use
  Company Number: AT-ROCHE-2718109

PATIENT
  Age: 60 Year
  Sex: Female
  Weight: 80 kg

DRUGS (55)
  1. ADO-TRASTUZUMAB EMTANSINE [Suspect]
     Active Substance: ADO-TRASTUZUMAB EMTANSINE
     Indication: Breast cancer metastatic
     Dosage: DOSE ON 24/APR/2018, 15/MAY/2018
     Route: 042
     Dates: start: 20171212
  2. ADO-TRASTUZUMAB EMTANSINE [Suspect]
     Active Substance: ADO-TRASTUZUMAB EMTANSINE
     Dosage: MOST RECENT DOSE PRIOR TO THE EVENT
     Route: 042
     Dates: start: 20180515
  3. TRASTUZUMAB [Suspect]
     Active Substance: TRASTUZUMAB
     Indication: Breast cancer metastatic
     Dosage: DOSE ON 21/NOV/2017, 04/SEP/2018, 23/OCT/2018, 27/MAY/2019
     Route: 042
     Dates: start: 20170306
  4. PERTUZUMAB [Suspect]
     Active Substance: PERTUZUMAB
     Indication: Breast cancer metastatic
     Dosage: DOSE ON: 21/NOV/2017
     Route: 042
     Dates: start: 20170306
  5. CAPECITABINE [Suspect]
     Active Substance: CAPECITABINE
     Indication: Breast cancer metastatic
     Dosage: DOSE ON: 04/SEP/2018, 10/SEP/2018, 27/MAY/2019
     Route: 048
     Dates: start: 20180904, end: 20180910
  6. LAPATINIB [Suspect]
     Active Substance: LAPATINIB
     Indication: Breast cancer metastatic
     Route: 048
     Dates: start: 20181227, end: 20190116
  7. LAPATINIB [Suspect]
     Active Substance: LAPATINIB
     Route: 048
     Dates: start: 20190116, end: 20190206
  8. VINORELBINE [Suspect]
     Active Substance: VINORELBINE TARTRATE
     Indication: Breast cancer metastatic
     Dosage: ONE DOSE ON 30/MAY/2017, 27/JUN/2017
     Route: 048
     Dates: start: 20170306
  9. KYTRIL [Concomitant]
     Active Substance: GRANISETRON HYDROCHLORIDE
     Dates: start: 20171212, end: 20181013
  10. PASPERTIN [Concomitant]
     Dates: start: 20171212, end: 20190907
  11. LACTULOSE [Concomitant]
     Active Substance: LACTULOSE
     Dates: start: 20171212, end: 20190907
  12. EMEND [Concomitant]
     Active Substance: APREPITANT
     Dates: start: 20180127, end: 20180813
  13. EMEND [Concomitant]
     Active Substance: APREPITANT
     Dates: start: 20180128, end: 20180814
  14. EMEND [Concomitant]
     Active Substance: APREPITANT
     Dates: start: 20180129, end: 20180815
  15. PANTOPRAZOLE SODIUM [Concomitant]
     Active Substance: PANTOPRAZOLE SODIUM
     Dosage: ONGOING = CHECKED
     Dates: start: 20170302
  16. DAFLON [Concomitant]
     Dates: end: 20190907
  17. NOVALGIN (AUSTRIA) [Concomitant]
     Indication: Back pain
     Dates: start: 20170327, end: 20191003
  18. NOVALGIN (AUSTRIA) [Concomitant]
     Indication: Hepatic pain
     Dates: start: 20171212, end: 20190907
  19. NOVALGIN (AUSTRIA) [Concomitant]
     Indication: Respiratory tract infection
     Dates: start: 20190315, end: 20190907
  20. NOVALGIN (AUSTRIA) [Concomitant]
     Dates: start: 20190509, end: 20190509
  21. HYDROMORPHONE HYDROCHLORIDE [Concomitant]
     Active Substance: HYDROMORPHONE HYDROCHLORIDE
     Indication: Back pain
     Dates: start: 20180628, end: 20190226
  22. HYDROMORPHONE HYDROCHLORIDE [Concomitant]
     Active Substance: HYDROMORPHONE HYDROCHLORIDE
     Dates: start: 20181227, end: 20190907
  23. BISOPROLOL FUMARATE [Concomitant]
     Active Substance: BISOPROLOL FUMARATE
     Dates: end: 20190907
  24. LASIX [Concomitant]
     Active Substance: FUROSEMIDE
     Dates: end: 20190907
  25. LYRICA [Concomitant]
     Active Substance: PREGABALIN
     Indication: Back pain
     Dates: start: 20181227, end: 20190226
  26. SUCRALFATE [Concomitant]
     Active Substance: SUCRALFATE
     Dates: end: 20190907
  27. BAMBUTEROL HYDROCHLORIDE [Concomitant]
     Active Substance: BAMBUTEROL HYDROCHLORIDE
  28. BUPRENORPHINE [Concomitant]
     Active Substance: BUPRENORPHINE
  29. KALIORAL [Concomitant]
     Dosage: ONGOING = CHECKED
  30. DEXAMETHASONE [Concomitant]
     Active Substance: DEXAMETHASONE
     Dates: start: 20170829, end: 20180813
  31. TEMESTA [Concomitant]
     Dates: start: 20190226
  32. MIRTAZAPINE [Concomitant]
     Active Substance: MIRTAZAPINE
     Dosage: ONGOING = NOT CHECKED
     Dates: start: 20190315, end: 20190907
  33. VENLAFAXINE HYDROCHLORIDE [Concomitant]
     Active Substance: VENLAFAXINE HYDROCHLORIDE
     Dosage: ONGOING = NOT CHECKED
     Dates: start: 20190315, end: 20190907
  34. DEXAMETHASONE [Concomitant]
     Active Substance: DEXAMETHASONE
     Dates: start: 20190215, end: 20190215
  35. DEXAMETHASONE [Concomitant]
     Active Substance: DEXAMETHASONE
     Dates: start: 20190215, end: 20190907
  36. EDOXABAN TOSYLATE [Concomitant]
     Active Substance: EDOXABAN TOSYLATE
     Indication: Pulmonary embolism
     Dosage: ONGOING = NOT CHECKED
     Dates: start: 20190315, end: 20190907
  37. DOXYCYCLINE [Concomitant]
     Active Substance: DOXYCYCLINE
     Indication: Respiratory tract infection
     Dosage: ONGOING = NOT CHECKED
     Dates: start: 20190502, end: 20190509
  38. AUGMENTIN [Concomitant]
     Active Substance: AMOXICILLIN\CLAVULANATE POTASSIUM
     Indication: Respiratory tract infection
     Dosage: ONGOING = NOT CHECKED
     Dates: start: 20190509, end: 20190516
  39. CORTISONE ACETATE [Concomitant]
     Active Substance: CORTISONE ACETATE
     Indication: Respiratory tract infection
     Dosage: ONGOING = NOT CHECKED
     Dates: start: 20190615, end: 20190615
  40. PARACODIN [Concomitant]
     Indication: Dyspnoea
     Dosage: ONGOING = CHECKED
     Dates: start: 20190510
  41. ZOLPIDEM [Concomitant]
     Active Substance: ZOLPIDEM TARTRATE
     Dates: start: 20190215, end: 20190315
  42. TRAZODONE HYDROCHLORIDE [Concomitant]
     Active Substance: TRAZODONE HYDROCHLORIDE
     Dates: start: 20181215, end: 20190226
  43. MIRTAZAPINE [Concomitant]
     Active Substance: MIRTAZAPINE
     Dosage: ONGOING = CHECKED
     Dates: start: 20190315
  44. EDOXABAN TOSYLATE [Concomitant]
     Active Substance: EDOXABAN TOSYLATE
     Indication: Pulmonary embolism
     Dosage: ONGOING = CHECKED
     Dates: start: 20190315
  45. ACETAMINOPHEN [Concomitant]
     Active Substance: ACETAMINOPHEN
  46. PREDNISOLONE SODIUM SUCCINATE [Concomitant]
     Active Substance: PREDNISOLONE SODIUM SUCCINATE
  47. DIMETHINDENE [Concomitant]
     Active Substance: DIMETHINDENE
  48. RANITIDINE HYDROCHLORIDE [Concomitant]
     Active Substance: RANITIDINE HYDROCHLORIDE
  49. LAPATINIB DITOSYLATE [Concomitant]
     Active Substance: LAPATINIB DITOSYLATE
     Route: 048
     Dates: start: 20181227, end: 20190116
  50. LAPATINIB DITOSYLATE [Concomitant]
     Active Substance: LAPATINIB DITOSYLATE
     Route: 048
     Dates: start: 20190116, end: 20190206
  51. ZYRTEC (AUSTRIA) [Concomitant]
  52. BUPRENORPHINE HYDROCHLORIDE [Concomitant]
     Active Substance: BUPRENORPHINE HYDROCHLORIDE
  53. DIAMOX SEQUELS [Concomitant]
     Active Substance: ACETAZOLAMIDE
  54. MANNIT [Concomitant]
  55. MORPHINE [Concomitant]
     Active Substance: MORPHINE

REACTIONS (18)
  - Headache [Recovered/Resolved]
  - Blindness [Recovered/Resolved with Sequelae]
  - Vomiting [Recovered/Resolved]
  - Headache [Unknown]
  - Angina pectoris [Recovered/Resolved]
  - Vomiting [Recovered/Resolved]
  - Polyneuropathy [Recovered/Resolved]
  - Vertigo [Recovered/Resolved]
  - Polyneuropathy [Not Recovered/Not Resolved]
  - Headache [Recovered/Resolved]
  - Vertigo [Not Recovered/Not Resolved]
  - Chills [Recovered/Resolved]
  - Cough [Recovered/Resolved]
  - Epistaxis [Recovered/Resolved]
  - Nausea [Recovered/Resolved]
  - Myalgia [Recovered/Resolved]
  - Bone pain [Recovered/Resolved]
  - Headache [Recovered/Resolved]

NARRATIVE: CASE EVENT DATE: 20170306
